FAERS Safety Report 19981661 (Version 2)
Quarter: 2022Q1

REPORT INFORMATION
  Report Type: Report from Study
  Country: ES (occurrence: None)
  Receive Date: 20211022
  Receipt Date: 20220205
  Transmission Date: 20220423
  Serious: No
  Sender: FDA-Public Use
  Company Number: ES-ROCHE-2936216

PATIENT
  Age: 58 Year
  Sex: Female
  Weight: 65 kg

DRUGS (2)
  1. IPATASERTIB [Suspect]
     Active Substance: IPATASERTIB
     Indication: Triple negative breast cancer
     Dosage: ADMINISTERED 300 MG DAILY BEGINNING ON CYCLE 1, ON DAYS 1-14 OF EACH 21-DAY CYCLE
     Route: 048
     Dates: start: 20210809
  2. CAPECITABINE [Suspect]
     Active Substance: CAPECITABINE
     Indication: Triple negative breast cancer
     Route: 048
     Dates: start: 20210809

REACTIONS (1)
  - Pneumonitis [Not Recovered/Not Resolved]

NARRATIVE: CASE EVENT DATE: 20211011
